FAERS Safety Report 22192897 (Version 3)
Quarter: 2023Q2

REPORT INFORMATION
  Report Type: Spontaneous
  Country: AU (occurrence: AU)
  Receive Date: 20230410
  Receipt Date: 20230607
  Transmission Date: 20230722
  Serious: Yes (Other)
  Sender: FDA-Public Use
  Company Number: AU-CELLTRION INC.-2023AU005577

PATIENT

DRUGS (2)
  1. INFLECTRA [Suspect]
     Active Substance: INFLIXIMAB-DYYB
     Indication: Therapeutic procedure
     Dosage: INDUCTION THERAPY
     Dates: start: 202210
  2. INFLECTRA [Suspect]
     Active Substance: INFLIXIMAB-DYYB
     Indication: Colitis ulcerative
     Dosage: 400 MG, CYCLIC (EVERY 8 WEEKS)

REACTIONS (3)
  - Condition aggravated [Unknown]
  - Drug level below therapeutic [Unknown]
  - Off label use [Unknown]
